FAERS Safety Report 23987422 (Version 1)
Quarter: 2024Q2

REPORT INFORMATION
  Report Type: Spontaneous
  Country: US (occurrence: US)
  Receive Date: 20240618
  Receipt Date: 20240618
  Transmission Date: 20240716
  Serious: Yes (Hospitalization, Other)
  Sender: FDA-Public Use
  Company Number: US-ViiV Healthcare Limited-US2024GSK071579

PATIENT

DRUGS (8)
  1. ZIDOVUDINE [Suspect]
     Active Substance: ZIDOVUDINE
     Indication: Acquired immunodeficiency syndrome
     Dosage: UNK
  2. FLUCONAZOLE [Interacting]
     Active Substance: FLUCONAZOLE
     Indication: Product used for unknown indication
     Dosage: 200 MG, 1D
     Route: 048
  3. PHENYTOIN [Interacting]
     Active Substance: PHENYTOIN
     Indication: Product used for unknown indication
     Dosage: 300 MG HS
     Route: 048
  4. PHENYTOIN [Interacting]
     Active Substance: PHENYTOIN
     Dosage: 200 MG HS
     Route: 048
  5. DIDANOSINE [Concomitant]
     Active Substance: DIDANOSINE
     Indication: Acquired immunodeficiency syndrome
     Dosage: UNK
  6. ZALCITABINE [Concomitant]
     Active Substance: ZALCITABINE
     Indication: Acquired immunodeficiency syndrome
     Dosage: UNK
  7. TETRACYCLINE [Concomitant]
     Active Substance: TETRACYCLINE
     Indication: Product used for unknown indication
     Dosage: 250 MG, QID
     Route: 048
  8. TETRACYCLINE [Concomitant]
     Active Substance: TETRACYCLINE
     Dosage: 250 MG, QID
     Route: 048

REACTIONS (16)
  - Toxicity to various agents [Recovered/Resolved]
  - Granulocytopenia [Recovered/Resolved]
  - Dizziness [Recovered/Resolved]
  - Ataxia [Recovered/Resolved]
  - Vertigo [Recovered/Resolved]
  - Nausea [Recovered/Resolved]
  - Vomiting [Recovered/Resolved]
  - Abdominal pain [Recovered/Resolved]
  - Ocular discomfort [Recovered/Resolved]
  - Cachexia [Recovered/Resolved]
  - Muscle atrophy [Recovered/Resolved]
  - Abdominal tenderness [Recovered/Resolved]
  - Cholelithiasis [Recovered/Resolved]
  - Gallbladder enlargement [Recovered/Resolved]
  - Drug interaction [Unknown]
  - Treatment noncompliance [Unknown]
